FAERS Safety Report 12725131 (Version 4)
Quarter: 2016Q4

REPORT INFORMATION
  Report Type: Spontaneous
  Country: US (occurrence: US)
  Receive Date: 20160908
  Receipt Date: 20161012
  Transmission Date: 20170207
  Serious: No
  Sender: FDA-Public Use
  Company Number: US-BRISTOL-MYERS SQUIBB COMPANY-BMS-2016-072937

PATIENT
  Sex: Male
  Weight: 75 kg

DRUGS (13)
  1. KENALOG-40 [Suspect]
     Active Substance: TRIAMCINOLONE ACETONIDE
     Indication: DERMATITIS ATOPIC
     Dosage: 40 MG, UNK
     Route: 030
     Dates: start: 2014
  2. FISH OIL [Concomitant]
     Active Substance: FISH OIL
     Indication: PRODUCT USED FOR UNKNOWN INDICATION
     Route: 065
  3. KENALOG-40 [Suspect]
     Active Substance: TRIAMCINOLONE ACETONIDE
     Dosage: 60 MG, BID
     Route: 030
     Dates: start: 20160603
  4. KENALOG-40 [Suspect]
     Active Substance: TRIAMCINOLONE ACETONIDE
     Dosage: 1 UNK, UNK
     Route: 030
     Dates: start: 2008
  5. ATENOLOL. [Concomitant]
     Active Substance: ATENOLOL
     Indication: PRODUCT USED FOR UNKNOWN INDICATION
     Dosage: 12.5 MG, QD
     Route: 065
  6. KENALOG-40 [Suspect]
     Active Substance: TRIAMCINOLONE ACETONIDE
     Dosage: 1.5 ML, UNK
     Route: 030
     Dates: start: 20160722
  7. ASPIRIN                            /00002701/ [Concomitant]
     Active Substance: ASPIRIN
     Indication: PRODUCT USED FOR UNKNOWN INDICATION
     Route: 065
  8. VITAMIN B3 [Concomitant]
     Active Substance: NIACIN
     Indication: PRODUCT USED FOR UNKNOWN INDICATION
     Route: 065
  9. KENALOG-40 [Suspect]
     Active Substance: TRIAMCINOLONE ACETONIDE
     Dosage: 60 MG, BID
     Route: 030
     Dates: start: 20160719
  10. IRON [Concomitant]
     Active Substance: IRON
     Indication: PRODUCT USED FOR UNKNOWN INDICATION
     Route: 065
  11. KENALOG-40 [Suspect]
     Active Substance: TRIAMCINOLONE ACETONIDE
     Indication: ECZEMA
     Dosage: 1 DF, UNK
     Route: 030
     Dates: start: 2014
  12. KENALOG-40 [Suspect]
     Active Substance: TRIAMCINOLONE ACETONIDE
     Indication: HYPERSENSITIVITY
     Dosage: 20 MG, UNK
     Route: 030
     Dates: start: 2014
  13. KENALOG-40 [Suspect]
     Active Substance: TRIAMCINOLONE ACETONIDE
     Dosage: 1.5 ML, UNK
     Route: 030
     Dates: start: 20160604

REACTIONS (17)
  - Impaired healing [Unknown]
  - Off label use [Unknown]
  - Hypertrichosis [Unknown]
  - Drug ineffective [Unknown]
  - Depression [Unknown]
  - Thermal burn [Unknown]
  - Skin fragility [Unknown]
  - Pruritus [Unknown]
  - Burning sensation [Unknown]
  - Pain [Unknown]
  - Dry skin [Unknown]
  - Alopecia [Unknown]
  - Insomnia [Unknown]
  - Decreased appetite [Unknown]
  - Palpitations [Unknown]
  - Erythema [Unknown]
  - Skin exfoliation [Unknown]
